FAERS Safety Report 9699888 (Version 1)
Quarter: 2013Q4

REPORT INFORMATION
  Report Type: Spontaneous
  Country: CA (occurrence: CA)
  Receive Date: 20131121
  Receipt Date: 20131121
  Transmission Date: 20140711
  Serious: Yes (Other)
  Sender: FDA-Public Use
  Company Number: CA-AMGEN-CANSP2013080673

PATIENT
  Age: 79 Year
  Sex: Male
  Weight: 75 kg

DRUGS (12)
  1. XGEVA [Suspect]
     Indication: PRODUCT USED FOR UNKNOWN INDICATION
     Dosage: 120 MG, QMO (9 MONTHS)
     Route: 058
  2. CALCIUM CARBONATE [Concomitant]
  3. DOMPERIDONE [Concomitant]
  4. LACTULOSE [Concomitant]
  5. FRAGMIN [Concomitant]
     Route: 042
  6. OXYNEO [Concomitant]
  7. PANTOPRAZOLE [Concomitant]
  8. POLYETHYLENE GLYCOL [Concomitant]
  9. PREDNISONE [Concomitant]
  10. QUETIAPINE [Concomitant]
  11. SENNOSIDE                          /00571901/ [Concomitant]
  12. VITAMIN D                          /00107901/ [Concomitant]

REACTIONS (2)
  - Blood calcium decreased [Unknown]
  - Blood phosphorus decreased [Unknown]
